FAERS Safety Report 14548268 (Version 1)
Quarter: 2018Q1

REPORT INFORMATION
  Report Type: Spontaneous
  Country: CH (occurrence: CH)
  Receive Date: 20180219
  Receipt Date: 20180219
  Transmission Date: 20180509
  Serious: Yes (Hospitalization)
  Sender: FDA-Public Use
  Company Number: CH-009507513-1802CHE006762

PATIENT
  Age: 62 Year
  Sex: Female

DRUGS (6)
  1. SEEBRI [Concomitant]
     Active Substance: GLYCOPYRRONIUM
  2. KEYTRUDA [Suspect]
     Active Substance: PEMBROLIZUMAB
     Route: 041
     Dates: start: 201706
  3. PANTOZOL [Concomitant]
     Active Substance: PANTOPRAZOLE SODIUM
  4. RELVAR ELLIPTA [Concomitant]
     Active Substance: FLUTICASONE FUROATE\VILANTEROL TRIFENATATE
  5. FRAXIPARINE [Concomitant]
     Active Substance: NADROPARIN CALCIUM
  6. BRINTELLIX [Concomitant]
     Active Substance: VORTIOXETINE HYDROBROMIDE

REACTIONS (2)
  - Autoimmune colitis [Recovered/Resolved]
  - Acute kidney injury [Recovered/Resolved]

NARRATIVE: CASE EVENT DATE: 201712
